FAERS Safety Report 7799243-9 (Version None)
Quarter: 2011Q4

REPORT INFORMATION
  Report Type: 
  Country: None (occurrence: None)
  Receive Date: 20111004
  Receipt Date: 20111004
  Transmission Date: 20120403
  Serious: No
  Sender: FDA-Public Use
  Company Number: None

PATIENT
  Age: 16 Year
  Sex: Female
  Weight: 55 kg

DRUGS (6)
  1. PROPOFOL [Concomitant]
  2. MIDAZOLAM HCL [Concomitant]
  3. FENTANYL [Concomitant]
  4. LIDOCAINE [Concomitant]
  5. ROCURONIUM BROMIDE [Suspect]
     Indication: NEUROMUSCULAR BLOCKING THERAPY
     Dosage: ROCURONIUM  50 MG (APPROX 1 MG/KG) ONCE IV
     Route: 042
     Dates: start: 20110922
  6. ROCURONIUM BROMIDE [Suspect]
     Indication: ENDOTRACHEAL INTUBATION
     Dosage: ROCURONIUM  50 MG (APPROX 1 MG/KG) ONCE IV
     Route: 042
     Dates: start: 20110922

REACTIONS (1)
  - THERAPEUTIC RESPONSE DELAYED [None]
